FAERS Safety Report 5369665-4 (Version None)
Quarter: 2007Q2

REPORT INFORMATION
  Report Type: 
  Country: None (occurrence: None)
  Receive Date: 20070625
  Receipt Date: 20070613
  Transmission Date: 20071010
  Serious: Yes (Death, Other)
  Sender: FDA-Public Use
  Company Number: JP-PFIZER INC-2007045044

PATIENT
  Age: 86 Year
  Sex: Female

DRUGS (1)
  1. VFEND ORAL SUSPENSION [Suspect]
     Indication: RESPIRATORY MONILIASIS
     Dosage: DAILY DOSE:400MG
     Route: 050
     Dates: start: 20070508, end: 20070521

REACTIONS (3)
  - CONDITION AGGRAVATED [None]
  - CONVULSION [None]
  - HEPATIC FUNCTION ABNORMAL [None]
